FAERS Safety Report 19919168 (Version 1)
Quarter: 2021Q4

REPORT INFORMATION
  Report Type: Report from Study
  Country: ZA (occurrence: ZA)
  Receive Date: 20211004
  Receipt Date: 20211004
  Transmission Date: 20220303
  Serious: Yes (Hospitalization)
  Sender: FDA-Public Use
  Company Number: ZA-GILEAD-2021-0550690

PATIENT
  Age: 1 Day
  Sex: Male
  Weight: 1.18 kg

DRUGS (8)
  1. EMTRICITABINE\TENOFOVIR [Suspect]
     Active Substance: EMTRICITABINE\TENOFOVIR
     Indication: HIV infection
     Dosage: 50/25/200 MG
     Route: 064
     Dates: start: 2021, end: 20210728
  2. EMTRICITABINE\TENOFOVIR [Suspect]
     Active Substance: EMTRICITABINE\TENOFOVIR
     Dosage: 50/25/200 MG
     Route: 063
     Dates: start: 2021
  3. NEVIRAPINE [Concomitant]
     Active Substance: NEVIRAPINE
  4. VITAMINS [Concomitant]
     Active Substance: VITAMINS
  5. VITAMIN D NOS [Concomitant]
     Active Substance: VITAMIN D NOS
  6. FOLATE SODIUM [Concomitant]
     Active Substance: FOLATE SODIUM
  7. FERROUS GLUCONATE [Concomitant]
     Active Substance: FERROUS GLUCONATE
  8. OXYGEN [Concomitant]
     Active Substance: OXYGEN

REACTIONS (3)
  - Low birth weight baby [Recovered/Resolved with Sequelae]
  - Foetal exposure during pregnancy [Recovered/Resolved]
  - Exposure via breast milk [Not Recovered/Not Resolved]

NARRATIVE: CASE EVENT DATE: 20210101
